FAERS Safety Report 6396905-5 (Version None)
Quarter: 2009Q4

REPORT INFORMATION
  Report Type: 
  Country: None (occurrence: None)
  Receive Date: 20091012
  Receipt Date: 20090605
  Transmission Date: 20100525
  Serious: No
  Sender: FDA-Public Use
  Company Number: US-ASTRAZENECA-2009UW14376

PATIENT

DRUGS (1)
  1. SYMBICORT [Suspect]
     Dosage: 80/4.5
     Route: 055

REACTIONS (1)
  - EYE DISORDER [None]
